FAERS Safety Report 5575256-2 (Version None)
Quarter: 2007Q4

REPORT INFORMATION
  Report Type: 
  Country: None (occurrence: None)
  Receive Date: 20071221
  Receipt Date: 20071218
  Transmission Date: 20080405
  Serious: Yes (Hospitalization)
  Sender: FDA-Public Use
  Company Number: 231394J07USA

PATIENT
  Age: 52 Year
  Sex: Female

DRUGS (7)
  1. REBIF [Suspect]
     Indication: MULTIPLE SCLEROSIS
     Dosage: 44 MCG, 3 IN 1 WEEKS, SUBCUTANEOUS, 44 MCG, 3 IN 1 WEEKS, SUBCUTANEOUS
     Route: 058
     Dates: start: 20071107, end: 20071210
  2. PAXIL [Concomitant]
  3. TOPROL XL (METOPROL SUCCINATE) [Concomitant]
  4. CARDIZEM (DILTIAZEM /00489701/) [Concomitant]
  5. LIPITOR [Concomitant]
  6. ZETIA [Concomitant]
  7. TRICOR [Concomitant]

REACTIONS (2)
  - STENT OCCLUSION [None]
  - SUICIDAL IDEATION [None]
